FAERS Safety Report 9516662 (Version 1)
Quarter: 2013Q3

REPORT INFORMATION
  Report Type: Spontaneous
  Country: RU (occurrence: RU)
  Receive Date: 20130911
  Receipt Date: 20130911
  Transmission Date: 20140515
  Serious: Yes (Hospitalization)
  Sender: FDA-Public Use
  Company Number: RU-BAYER-2013-108903

PATIENT
  Age: 27 Year
  Sex: Female

DRUGS (1)
  1. QLAIRA [Suspect]
     Dosage: UNK

REACTIONS (2)
  - Uterine haemorrhage [Recovered/Resolved]
  - Hallucination [Recovered/Resolved]
